FAERS Safety Report 8269482-1 (Version None)
Quarter: 2012Q2

REPORT INFORMATION
  Report Type: 
  Country: None (occurrence: None)
  Receive Date: 20120409
  Receipt Date: 20120330
  Transmission Date: 20120825
  Serious: Yes (Hospitalization)
  Sender: FDA-Public Use
  Company Number: JP-VERTEX PHARMACEUTICALS INC.-AE-2012-004786

PATIENT
  Age: 51 Year
  Sex: Male

DRUGS (5)
  1. PEG-INTRON [Concomitant]
     Indication: HEPATITIS C
     Dates: start: 20120202, end: 20120305
  2. REBETOL [Concomitant]
     Dates: start: 20120229, end: 20120305
  3. TELAVIC (TELAPREVIR) [Suspect]
     Indication: HEPATITIS C
     Dates: start: 20120202, end: 20120229
  4. TELAVIC (TELAPREVIR) [Suspect]
     Dates: start: 20120229, end: 20120305
  5. REBETOL [Concomitant]
     Indication: HEPATITIS C
     Dates: start: 20120202, end: 20120229

REACTIONS (5)
  - DYSGEUSIA [None]
  - MALAISE [None]
  - EPISTAXIS [None]
  - PANCYTOPENIA [None]
  - DECREASED APPETITE [None]
